FAERS Safety Report 5034352-9 (Version None)
Quarter: 2006Q2

REPORT INFORMATION
  Report Type: 
  Country: None (occurrence: None)
  Receive Date: 20060626
  Receipt Date: 20060615
  Transmission Date: 20061013
  Serious: Yes (Other)
  Sender: FDA-Public Use
  Company Number: BG-ROCHE-451982

PATIENT
  Age: 44 Year
  Sex: Female
  Weight: 76 kg

DRUGS (6)
  1. PEGASYS [Suspect]
     Route: 058
     Dates: start: 20050819, end: 20060525
  2. PEGASYS [Suspect]
     Route: 058
     Dates: start: 20060526, end: 20060605
  3. COPEGUS [Suspect]
     Route: 048
     Dates: start: 20050819, end: 20060223
  4. COPEGUS [Suspect]
     Route: 048
     Dates: start: 20060224, end: 20060525
  5. COPEGUS [Suspect]
     Route: 048
     Dates: start: 20060526
  6. NEORECORMON [Suspect]
     Route: 058
     Dates: start: 20060224, end: 20060317

REACTIONS (2)
  - BRADYPHRENIA [None]
  - CYTOKINE RELEASE SYNDROME [None]
